FAERS Safety Report 6638154-9 (Version None)
Quarter: 2010Q1

REPORT INFORMATION
  Report Type: 
  Country: None (occurrence: None)
  Receive Date: 20100315
  Receipt Date: 20100315
  Transmission Date: 20100710
  Serious: Yes (Hospitalization)
  Sender: FDA-Public Use
  Company Number: None

PATIENT
  Sex: Male

DRUGS (9)
  1. AVASTIN [Suspect]
     Indication: NON-SMALL CELL LUNG CANCER
     Dosage: 1,009 MG EVERY 21 DAYS IV
     Route: 042
     Dates: start: 20090715, end: 20100125
  2. GABAPENTIN [Concomitant]
  3. METHADONE HCL [Concomitant]
  4. DILAUDID [Concomitant]
  5. DURAGESIC-100 [Concomitant]
  6. MIRALAX [Concomitant]
  7. SENNA [Concomitant]
  8. COLACE [Concomitant]
  9. PRILOSEC [Concomitant]

REACTIONS (3)
  - MALIGNANT NEOPLASM PROGRESSION [None]
  - NON-SMALL CELL LUNG CANCER STAGE IV [None]
  - PAIN [None]
